FAERS Safety Report 24424637 (Version 19)
Quarter: 2025Q4

REPORT INFORMATION
  Report Type: Report from Study
  Country: US (occurrence: US)
  Receive Date: 20241010
  Receipt Date: 20251215
  Transmission Date: 20260118
  Serious: Yes (Disabling, Other)
  Sender: UCB
  Company Number: US-UCBSA-2024046979

PATIENT
  Age: 22 Year
  Weight: 63 kg

DRUGS (39)
  1. FENFLURAMINE [Suspect]
     Active Substance: FENFLURAMINE
     Indication: Lennox-Gastaut syndrome
     Dosage: 5.9 MILLILITER, 2X/DAY (BID)
     Route: 061
  2. FENFLURAMINE [Suspect]
     Active Substance: FENFLURAMINE
     Dosage: 5.9 MILLILITER, 2X/DAY (BID)
     Route: 061
  3. FENFLURAMINE [Suspect]
     Active Substance: FENFLURAMINE
     Dosage: 5.9 MILLILITER, 2X/DAY (BID)
  4. FENFLURAMINE [Suspect]
     Active Substance: FENFLURAMINE
     Dosage: 5.9 MILLILITER, 2X/DAY (BID)
  5. FENFLURAMINE [Suspect]
     Active Substance: FENFLURAMINE
     Dosage: 5.9 MILLILITER, 2X/DAY (BID)
  6. FENFLURAMINE [Suspect]
     Active Substance: FENFLURAMINE
     Dosage: 5 MILLILITER, 2X/DAY (BID)
  7. FENFLURAMINE [Suspect]
     Active Substance: FENFLURAMINE
     Dosage: 5.9 MILLILITER, 2X/DAY (BID)
     Route: 061
  8. FENFLURAMINE [Suspect]
     Active Substance: FENFLURAMINE
     Dosage: 5.9 MILLILITER, 2X/DAY (BID)
  9. FENFLURAMINE [Suspect]
     Active Substance: FENFLURAMINE
     Dosage: 5.9 MILLILITER, 2X/DAY (BID)
  10. FENFLURAMINE [Suspect]
     Active Substance: FENFLURAMINE
     Dosage: 5.9 MILLILITER, 2X/DAY (BID)
  11. FENFLURAMINE [Suspect]
     Active Substance: FENFLURAMINE
     Dosage: 5.9 MILLILITER, 2X/DAY (BID)
  12. FENFLURAMINE [Suspect]
     Active Substance: FENFLURAMINE
     Dosage: 5.9 MILLIGRAM (2.2 MG/KG/DAY) PER DAY
  13. FENFLURAMINE [Suspect]
     Active Substance: FENFLURAMINE
     Dosage: 5.9 MILLILITER, 2X/DAY (BID)
  14. FENFLURAMINE [Suspect]
     Active Substance: FENFLURAMINE
     Dosage: 5.9 MILLILITER, 2X/DAY (BID)
  15. VIMPAT [Suspect]
     Active Substance: LACOSAMIDE
     Indication: Epilepsy
     Dosage: 20 MILLILITER, 2X/DAY (BID)
     Route: 061
  16. VIMPAT [Suspect]
     Active Substance: LACOSAMIDE
     Indication: Seizure
  17. BRIVIACT [Suspect]
     Active Substance: BRIVARACETAM
     Indication: Epilepsy
     Dosage: 100 MILLIGRAM, 2X/DAY (BID)
     Route: 061
  18. BRIVIACT [Suspect]
     Active Substance: BRIVARACETAM
     Indication: Seizure
  19. CLONAZEPAM [Suspect]
     Active Substance: CLONAZEPAM
     Indication: Lennox-Gastaut syndrome
     Dosage: 1 MILLIGRAM, 3X/DAY (TID)
     Route: 061
  20. CLONAZEPAM [Suspect]
     Active Substance: CLONAZEPAM
     Indication: Seizure
  21. DIASTAT [Suspect]
     Active Substance: DIAZEPAM
     Indication: Seizure
  22. ALBENDAZOLE [Concomitant]
     Active Substance: ALBENDAZOLE
     Indication: Product used for unknown indication
     Dosage: UNK
  23. ARIPIPRAZOLE [Concomitant]
     Active Substance: ARIPIPRAZOLE
     Indication: Lennox-Gastaut syndrome
     Dosage: 10 MILLIGRAM, 2X/DAY (BID)
     Route: 061
  24. CHOLECALCIFEROL [Concomitant]
     Active Substance: CHOLECALCIFEROL
     Indication: Product used for unknown indication
     Dosage: 5 MILLILITER, ONCE DAILY (QD)
     Route: 061
  25. DOCUSATE SODIUM [Concomitant]
     Active Substance: DOCUSATE SODIUM
     Indication: Constipation
     Dosage: 10 MILLILITER/AS NEEDED
     Route: 061
  26. dulcolax [Concomitant]
     Indication: Constipation
     Dosage: 30 MILLILITER, ONCE DAILY (QD)
     Route: 061
  27. EPIDIOLEX [Concomitant]
     Active Substance: CANNABIDIOL
     Indication: Product used for unknown indication
     Dosage: 5 MILLILITER, 2X/DAY (BID)
     Route: 061
  28. OMEPRAZOLE [Concomitant]
     Active Substance: OMEPRAZOLE
     Indication: Product used for unknown indication
     Dosage: 20 MILLILITER, ONCE DAILY (QD)
     Route: 061
  29. FLUTICASONE [Concomitant]
     Active Substance: FLUTICASONE
     Indication: Product used for unknown indication
     Dosage: 1 DROP IN EACH NOSTRIL
  30. HYPOCYN [Concomitant]
     Indication: Product used for unknown indication
     Dosage: APPLY 2 SPRAY
     Route: 048
  31. SIMETHICONE (DIMETHICONE) [Concomitant]
     Active Substance: DIMETHICONE
     Indication: Product used for unknown indication
     Dosage: 0.6ML, EVERY 3-4 HOURS
     Route: 061
  32. NYSTATIN [Concomitant]
     Active Substance: NYSTATIN
     Indication: Product used for unknown indication
     Dosage: UNK, AS NEEDED TO AFFECTED AREA
     Route: 048
  33. OMEPRAZOLE [Concomitant]
     Active Substance: OMEPRAZOLE
     Indication: Product used for unknown indication
     Dosage: 20 MILLIGRAM
     Route: 061
  34. POLYETHYLENE GLYCOL [Concomitant]
     Active Substance: POLYETHYLENE GLYCOL
     Indication: Product used for unknown indication
     Dosage: MIX 1 CAP FULL
     Route: 061
  35. RUFINAMIDE [Concomitant]
     Active Substance: RUFINAMIDE
     Indication: Seizure
     Dosage: 1000 MILLIGRAM, 3X/DAY (TID)
     Route: 061
  36. TRIAMCINOLONE ACETONIDE [Concomitant]
     Active Substance: TRIAMCINOLONE ACETONIDE
     Indication: Product used for unknown indication
     Dosage: APPLY THIN LAYER TWICE DAILY
  37. trueplus [Concomitant]
     Indication: Product used for unknown indication
     Dosage: 1 AS NEEDED
     Route: 061
  38. VALTOCO [Concomitant]
     Active Substance: DIAZEPAM
     Indication: Product used for unknown indication
     Dosage: 1 SPRAY IN EACH NOSTRIL, ALTERNATE SPRAY
  39. zelta [Concomitant]
     Indication: Product used for unknown indication
     Dosage: 10 MILLIGRAM, ONCE DAILY (QD)
     Route: 061

REACTIONS (28)
  - Seizure [Not Recovered/Not Resolved]
  - Blindness cortical [Unknown]
  - Immunodeficiency [Unknown]
  - Disability [Unknown]
  - Cerebral palsy [Unknown]
  - Pulmonary congestion [Unknown]
  - Oxygen saturation decreased [Recovered/Resolved]
  - Tremor [Not Recovered/Not Resolved]
  - Restlessness [Not Recovered/Not Resolved]
  - Dermatophagia [Not Recovered/Not Resolved]
  - Infection [Not Recovered/Not Resolved]
  - Diarrhoea [Recovered/Resolved]
  - Agitation [Not Recovered/Not Resolved]
  - Muscle spasms [Unknown]
  - Eye infection [Unknown]
  - Nutritional condition abnormal [Unknown]
  - Constipation [Unknown]
  - Dehydration [Unknown]
  - Bronchitis [Unknown]
  - Skin disorder [Unknown]
  - Conjunctivitis [Unknown]
  - Dermatosis [Unknown]
  - Bedridden [Unknown]
  - Eye operation [Unknown]
  - Brain operation [Unknown]
  - Hypersomnia [Not Recovered/Not Resolved]
  - Grunting [Not Recovered/Not Resolved]
  - Drug ineffective [Unknown]
